FAERS Safety Report 7142753-8 (Version None)
Quarter: 2010Q4

REPORT INFORMATION
  Report Type: 
  Country: None (occurrence: None)
  Receive Date: 20101207
  Receipt Date: 20101203
  Transmission Date: 20110411
  Serious: Yes (Death, Hospitalization)
  Sender: FDA-Public Use
  Company Number: PHHY2010MX46643

PATIENT
  Age: 75 Year
  Sex: Female

DRUGS (1)
  1. ACLASTA [Suspect]
     Indication: OSTEOPOROSIS
     Dosage: (5 MG/100ML) PER YEAR
     Route: 042
     Dates: start: 20080820

REACTIONS (2)
  - PNEUMONIA [None]
  - RESPIRATORY ARREST [None]
